FAERS Safety Report 17762937 (Version 1)
Quarter: 2020Q2

REPORT INFORMATION
  Report Type: Spontaneous
  Country: IN (occurrence: IN)
  Receive Date: 20200508
  Receipt Date: 20200508
  Transmission Date: 20200714
  Serious: Yes (Hospitalization)
  Sender: FDA-Public Use
  Company Number: NVSC2020IN124783

PATIENT
  Sex: Male

DRUGS (1)
  1. FUROSEMIDE. [Suspect]
     Active Substance: FUROSEMIDE
     Indication: ASCITES
     Dosage: 40 MG, QD
     Route: 042

REACTIONS (4)
  - Blood creatinine increased [Recovering/Resolving]
  - Product use in unapproved indication [Unknown]
  - Blood urea increased [Recovering/Resolving]
  - Incorrect route of product administration [Unknown]
